FAERS Safety Report 7956741-2 (Version None)
Quarter: 2011Q4

REPORT INFORMATION
  Report Type: 
  Country: None (occurrence: None)
  Receive Date: 20111205
  Receipt Date: 20111126
  Transmission Date: 20120403
  Serious: Yes (Hospitalization, Other)
  Sender: FDA-Public Use
  Company Number: US-BAYER-2011-019301

PATIENT
  Age: 18 Year
  Sex: Female
  Weight: 79.819 kg

DRUGS (3)
  1. IBUPROFEN [Concomitant]
     Route: 048
  2. YAZ [Suspect]
     Indication: ACNE
     Dosage: UNK
     Dates: start: 20090204, end: 20090310
  3. YAZ [Suspect]
     Indication: ORAL CONTRACEPTION

REACTIONS (5)
  - PULMONARY EMBOLISM [None]
  - PAIN [None]
  - DYSPNOEA [None]
  - CHEST PAIN [None]
  - VENA CAVA THROMBOSIS [None]
